FAERS Safety Report 23164641 (Version 1)
Quarter: 2023Q4

REPORT INFORMATION
  Report Type: Spontaneous
  Country: US (occurrence: US)
  Receive Date: 20231109
  Receipt Date: 20231109
  Transmission Date: 20240109
  Serious: No
  Sender: FDA-Public Use
  Company Number: US-BRISTOL-MYERS SQUIBB COMPANY-2023-160993

PATIENT
  Age: 70 Year
  Sex: Male

DRUGS (1)
  1. REVLIMID [Suspect]
     Active Substance: LENALIDOMIDE
     Indication: Plasma cell myeloma
     Dosage: DOSE : 15MG CAPSULE;     FREQ : ONCE A DAY 21 DAYS ON 7 DAYS OFF
     Route: 048

REACTIONS (4)
  - Gastrointestinal disorder [Unknown]
  - Gastrointestinal pain [Unknown]
  - Flatulence [Unknown]
  - Frequent bowel movements [Unknown]
